FAERS Safety Report 18248063 (Version 1)
Quarter: 2020Q3

REPORT INFORMATION
  Report Type: Spontaneous
  Country: US (occurrence: US)
  Receive Date: 20200909
  Receipt Date: 20200909
  Transmission Date: 20201103
  Serious: No
  Sender: FDA-Public Use
  Company Number: US-PERRIGO-20US008699

PATIENT
  Age: 63 Year
  Sex: Male
  Weight: 79.37 kg

DRUGS (1)
  1. ALBUTEROL SULFATE. [Suspect]
     Active Substance: ALBUTEROL SULFATE
     Indication: WHEEZING
     Dosage: 180 MCG, EVERY 6 HOURS, PRN
     Route: 055
     Dates: start: 202003, end: 20200615

REACTIONS (2)
  - Drug administered in wrong device [Recovered/Resolved]
  - Device delivery system issue [Unknown]

NARRATIVE: CASE EVENT DATE: 20200612
